FAERS Safety Report 4662720-3 (Version None)
Quarter: 2005Q2

REPORT INFORMATION
  Report Type: 
  Country: None (occurrence: None)
  Receive Date: 20050516
  Receipt Date: 20050411
  Transmission Date: 20051028
  Serious: Yes (Hospitalization)
  Sender: FDA-Public Use
  Company Number: IT-GLAXOSMITHKLINE-B0377573A

PATIENT
  Age: 81 Year
  Sex: Male
  Weight: 85 kg

DRUGS (5)
  1. BLINDED TRIAL MEDICATION [Suspect]
     Indication: CHRONIC OBSTRUCTIVE PULMONARY DISEASE
     Route: 055
     Dates: start: 20031013, end: 20050429
  2. SALBUTAMOL [Suspect]
     Indication: CHRONIC OBSTRUCTIVE PULMONARY DISEASE
     Dosage: 100MCG AS REQUIRED
     Route: 055
     Dates: start: 20030926, end: 20050403
  3. SALMETEROL [Concomitant]
     Dosage: 50MCG TWICE PER DAY
     Route: 055
     Dates: start: 20030926, end: 20031012
  4. PREDNISOLONE [Concomitant]
     Dosage: 30MG PER DAY
     Route: 048
     Dates: start: 20030927, end: 20031012
  5. FRIVENT [Concomitant]
     Dosage: 200MG TWICE PER DAY
     Route: 048
     Dates: start: 20050205, end: 20050403

REACTIONS (10)
  - ATRIAL FIBRILLATION [None]
  - BLOOD PRESSURE INCREASED [None]
  - CARDIAC FAILURE CONGESTIVE [None]
  - CHEST PAIN [None]
  - CHRONIC OBSTRUCTIVE AIRWAYS DISEASE EXACERBATED [None]
  - COR PULMONALE CHRONIC [None]
  - DYSPNOEA [None]
  - DYSPNOEA EXACERBATED [None]
  - PRODUCTIVE COUGH [None]
  - RESPIRATORY FAILURE [None]
